FAERS Safety Report 5841911-X (Version None)
Quarter: 2008Q3

REPORT INFORMATION
  Report Type: 
  Country: None (occurrence: None)
  Receive Date: 20080812
  Receipt Date: 20080805
  Transmission Date: 20090109
  Serious: Yes (Hospitalization)
  Sender: FDA-Public Use
  Company Number: JP-ASTRAZENECA-2008AP06071

PATIENT
  Age: 50 Year
  Sex: Female

DRUGS (3)
  1. NAROPIN [Suspect]
     Indication: NERVE BLOCK
     Dosage: DOSE UNKNOWN
     Route: 053
     Dates: start: 20080805, end: 20080805
  2. XYLOCAINE [Suspect]
     Indication: NERVE BLOCK
     Dosage: DOSE UNKNOWN
     Route: 053
     Dates: start: 20080805, end: 20080805
  3. SOL-MELCORT [Concomitant]
     Route: 042
     Dates: start: 20080805, end: 20080805

REACTIONS (3)
  - BLOOD PRESSURE INCREASED [None]
  - CONVULSION [None]
  - DEPRESSED LEVEL OF CONSCIOUSNESS [None]
